FAERS Safety Report 21509600 (Version 1)
Quarter: 2022Q4

REPORT INFORMATION
  Report Type: Spontaneous
  Country: US (occurrence: None)
  Receive Date: 20221026
  Receipt Date: 20221026
  Transmission Date: 20230113
  Serious: Yes (Other)
  Sender: FDA-Public Use
  Company Number: None

PATIENT
  Age: 78 Year
  Sex: Male
  Weight: 100.8 kg

DRUGS (5)
  1. FENTANYL [Suspect]
     Active Substance: FENTANYL
     Indication: Anaesthesia
     Dosage: OTHER QUANTITY : 1 INJECTION(S)?OTHER FREQUENCY : 1?
     Route: 042
     Dates: start: 20221020, end: 20221020
  2. AMLODIPINE [Concomitant]
     Active Substance: AMLODIPINE BESYLATE
  3. ESCITALOPRAM OXALATE [Concomitant]
     Active Substance: ESCITALOPRAM OXALATE
  4. CELECOXIB [Concomitant]
     Active Substance: CELECOXIB
  5. ATORVASTATIN CALCIUM [Concomitant]
     Active Substance: ATORVASTATIN CALCIUM

REACTIONS (4)
  - Hallucination [None]
  - Unwanted awareness during anaesthesia [None]
  - Pain [None]
  - Anaesthetic complication [None]

NARRATIVE: CASE EVENT DATE: 20221020
